FAERS Safety Report 25956420 (Version 2)
Quarter: 2025Q4

REPORT INFORMATION
  Report Type: Spontaneous
  Country: CA (occurrence: CA)
  Receive Date: 20251024
  Receipt Date: 20251025
  Transmission Date: 20260118
  Serious: Yes (Life-Threatening, Hospitalization, Other)
  Sender: TEVA
  Company Number: CA-TEVA-VS-3383906

PATIENT
  Age: 70 Year
  Sex: Male

DRUGS (3)
  1. CISPLATIN [Suspect]
     Active Substance: CISPLATIN
     Indication: Squamous cell carcinoma
     Route: 042
  2. CEMIPLIMAB [Suspect]
     Active Substance: CEMIPLIMAB
     Indication: Squamous cell carcinoma
     Route: 042
  3. DOCETAXEL [Suspect]
     Active Substance: DOCETAXEL
     Indication: Squamous cell carcinoma
     Dosage: DOSE FORM: NOT SPECIFIED
     Route: 042

REACTIONS (7)
  - Febrile neutropenia [Unknown]
  - COVID-19 [Unknown]
  - Acute kidney injury [Unknown]
  - Product use issue [Unknown]
  - Off label use [Unknown]
  - Drug effective for unapproved indication [Unknown]
  - Off label use [Unknown]
